FAERS Safety Report 16941227 (Version 1)
Quarter: 2019Q4

REPORT INFORMATION
  Report Type: Spontaneous
  Country: US (occurrence: US)
  Receive Date: 20190828
  Receipt Date: 20190828
  Transmission Date: 20200122
  Serious: No
  Sender: FDA-Public Use
  Company Number: None

PATIENT
  Age: 87 Year
  Sex: Female
  Weight: 69.4 kg

DRUGS (15)
  1. VITAMIN D3 [Concomitant]
     Active Substance: CHOLECALCIFEROL
  2. IPRATROPIUM BROMIDE NASAL SOLUTION 0.06% [Suspect]
     Active Substance: IPRATROPIUM BROMIDE
     Indication: RHINORRHOEA
     Route: 045
     Dates: start: 20190408, end: 20190418
  3. ALLOPURINOL. [Concomitant]
     Active Substance: ALLOPURINOL
  4. DILTIAZEM LA [Concomitant]
  5. FUROSEMIDE. [Concomitant]
     Active Substance: FUROSEMIDE
  6. HYDROXYUREA. [Concomitant]
     Active Substance: HYDROXYUREA
  7. ASPIRIN. [Concomitant]
     Active Substance: ASPIRIN
  8. HYDRALAZINE [Concomitant]
     Active Substance: HYDRALAZINE HYDROCHLORIDE
  9. METFORMIN [Concomitant]
     Active Substance: METFORMIN HYDROCHLORIDE
  10. VITAMIN B12 [Concomitant]
     Active Substance: CYANOCOBALAMIN
  11. IPRATROPIUM BROMIDE NASAL SOLUTION 0.06% [Suspect]
     Active Substance: IPRATROPIUM BROMIDE
     Indication: COUGH
     Route: 045
     Dates: start: 20190408, end: 20190418
  12. ATORVASTATIN [Concomitant]
     Active Substance: ATORVASTATIN
  13. MAGNESIUM OXIDE. [Concomitant]
     Active Substance: MAGNESIUM OXIDE
  14. ACETAMINOPHEN. [Concomitant]
     Active Substance: ACETAMINOPHEN
  15. HYDROCODONE-CHLORPHENIRAMINE [Concomitant]

REACTIONS (11)
  - Condition aggravated [None]
  - Lymphadenopathy [None]
  - Cough [None]
  - Anosmia [None]
  - Headache [None]
  - Ear pain [None]
  - Ear congestion [None]
  - Feeling abnormal [None]
  - Therapy change [None]
  - Ageusia [None]
  - Dysphonia [None]

NARRATIVE: CASE EVENT DATE: 20190408
